FAERS Safety Report 19868457 (Version 7)
Quarter: 2021Q4

REPORT INFORMATION
  Report Type: Report from Study
  Country: CA (occurrence: CA)
  Receive Date: 20210921
  Receipt Date: 20211224
  Transmission Date: 20220303
  Serious: Yes (Other)
  Sender: FDA-Public Use
  Company Number: CA-UCBSA-2021040440

PATIENT
  Sex: Female

DRUGS (4)
  1. CERTOLIZUMAB PEGOL [Suspect]
     Active Substance: CERTOLIZUMAB PEGOL
     Indication: Psoriasis
     Dosage: 400 MILLIGRAM, EV 2 WEEKS(QOW)
     Route: 058
     Dates: start: 20210817, end: 2021
  2. CERTOLIZUMAB PEGOL [Suspect]
     Active Substance: CERTOLIZUMAB PEGOL
     Indication: Psoriatic arthropathy
     Dosage: 400 MILLIGRAM, WEEKLY (QW)
     Route: 058
     Dates: start: 2021, end: 20211210
  3. LYRICA [Concomitant]
     Active Substance: PREGABALIN
     Indication: Neuralgia
     Dosage: UNK
     Dates: end: 2021
  4. GABAPENTIN [Concomitant]
     Active Substance: GABAPENTIN
     Indication: Product used for unknown indication
     Dosage: UNK
     Dates: start: 2021

REACTIONS (14)
  - Psoriatic arthropathy [Not Recovered/Not Resolved]
  - Neuropathy peripheral [Unknown]
  - Injection site pain [Unknown]
  - Injection site haemorrhage [Unknown]
  - Feeling abnormal [Unknown]
  - Stress [Not Recovered/Not Resolved]
  - Arthropod sting [Unknown]
  - Peripheral swelling [Unknown]
  - Alopecia [Not Recovered/Not Resolved]
  - Memory impairment [Unknown]
  - Product prescribing issue [Unknown]
  - Inappropriate schedule of product administration [Unknown]
  - Product use issue [Unknown]
  - Drug ineffective [Unknown]

NARRATIVE: CASE EVENT DATE: 20210101
